FAERS Safety Report 24385736 (Version 1)
Quarter: 2024Q4

REPORT INFORMATION
  Report Type: Spontaneous
  Country: US (occurrence: US)
  Receive Date: 20241001
  Receipt Date: 20241001
  Transmission Date: 20250115
  Serious: Yes (Life-Threatening, Hospitalization)
  Sender: JOHNSON AND JOHNSON
  Company Number: US-JNJFOC-20240962884

PATIENT
  Age: 14 Year
  Sex: Male

DRUGS (4)
  1. IBUPROFEN [Suspect]
     Active Substance: IBUPROFEN
     Indication: Product used for unknown indication
     Dosage: UNKNOWN AMOUNT
     Route: 048
  2. DEXTROAMPHETAMINE [Suspect]
     Active Substance: DEXTROAMPHETAMINE
     Indication: Product used for unknown indication
     Route: 048
  3. MELOXICAM [Suspect]
     Active Substance: MELOXICAM
     Indication: Product used for unknown indication
     Route: 048
  4. ASPIRIN [Suspect]
     Active Substance: ASPIRIN
     Indication: Product used for unknown indication
     Dosage: 15-20  TABLETS
     Route: 048

REACTIONS (8)
  - Metabolic alkalosis [Unknown]
  - Suicide attempt [Unknown]
  - Gastric ulcer [Unknown]
  - Ileal ulcer [Unknown]
  - Tachycardia [Unknown]
  - Tic [Unknown]
  - Confusional state [Unknown]
  - Intentional overdose [Unknown]
